FAERS Safety Report 21731042 (Version 2)
Quarter: 2022Q4

REPORT INFORMATION
  Report Type: Spontaneous
  Country: JP (occurrence: JP)
  Receive Date: 20221215
  Receipt Date: 20221223
  Transmission Date: 20230113
  Serious: Yes (Hospitalization, Other)
  Sender: FDA-Public Use
  Company Number: JP-TAKEDA-2022TJP078952

PATIENT
  Sex: Female

DRUGS (1)
  1. AGRYLIN [Suspect]
     Active Substance: ANAGRELIDE HYDROCHLORIDE
     Indication: Essential thrombocythaemia
     Dosage: 3.5 MILLIGRAM
     Route: 048

REACTIONS (1)
  - Mallory-Weiss syndrome [Not Recovered/Not Resolved]

NARRATIVE: CASE EVENT DATE: 20221213
